FAERS Safety Report 17191789 (Version 1)
Quarter: 2020Q1

REPORT INFORMATION
  Report Type: Spontaneous
  Country: US (occurrence: US)
  Receive Date: 20191222
  Receipt Date: 20191222
  Transmission Date: 20200409
  Serious: No
  Sender: FDA-Public Use
  Company Number: None

PATIENT
  Age: 19 Year
  Sex: Female
  Weight: 47.25 kg

DRUGS (4)
  1. RANITIDINE TABLETS, USP [Suspect]
     Active Substance: RANITIDINE
     Indication: GASTRIC ULCER
     Dosage: ?          QUANTITY:1 TABLET(S);?
     Route: 048
     Dates: start: 20191010, end: 20191112
  2. VENLAFAXINE HCL [Concomitant]
     Active Substance: VENLAFAXINE HYDROCHLORIDE
  3. WOMEN^S DAILY MULTI-VITAMIN [Concomitant]
  4. RANITIDINE TABLETS, USP [Suspect]
     Active Substance: RANITIDINE
     Indication: NAUSEA
     Dosage: ?          QUANTITY:1 TABLET(S);?
     Route: 048
     Dates: start: 20191010, end: 20191112

REACTIONS (3)
  - Nausea [None]
  - Recalled product [None]
  - Vomiting [None]

NARRATIVE: CASE EVENT DATE: 20191012
